FAERS Safety Report 6608905-8 (Version None)
Quarter: 2010Q1

REPORT INFORMATION
  Report Type: 
  Country: None (occurrence: None)
  Receive Date: 20100301
  Receipt Date: 20100217
  Transmission Date: 20100710
  Serious: Yes (Other)
  Sender: FDA-Public Use
  Company Number: JP-PFIZER INC-2010021455

PATIENT
  Age: 30 Year
  Sex: Male

DRUGS (8)
  1. GABAPEN [Suspect]
     Indication: EPILEPSY
     Dosage: 600 MG PER DAY
     Route: 048
     Dates: start: 20100117, end: 20100124
  2. GABAPEN [Suspect]
     Dosage: 900 MG PER DAY
     Route: 048
     Dates: start: 20100124
  3. LAMISIL [Suspect]
     Indication: ONYCHOMYCOSIS
     Dates: start: 20091222, end: 20100106
  4. GASTER [Suspect]
     Dosage: 20 MG PER DAY
     Route: 048
  5. EXCEGRAN [Suspect]
     Route: 048
  6. EGUALEN SODIUM [Suspect]
     Route: 048
  7. PROHEPARUM [Concomitant]
     Dosage: UNK
     Route: 048
     Dates: start: 20100106
  8. GLYCYRON [Concomitant]
     Dosage: UNK
     Route: 048
     Dates: start: 20100106

REACTIONS (1)
  - HEPATIC FUNCTION ABNORMAL [None]
